FAERS Safety Report 13255916 (Version 1)
Quarter: 2017Q1

REPORT INFORMATION
  Report Type: Spontaneous
  Country: US (occurrence: US)
  Receive Date: 20170219
  Receipt Date: 20170219
  Transmission Date: 20170428
  Serious: No
  Sender: FDA-Public Use
  Company Number: None

PATIENT
  Age: 9 Year
  Sex: Male
  Weight: 29.25 kg

DRUGS (2)
  1. ZYRTEC KIDS [Concomitant]
  2. TAMIFLU [Suspect]
     Active Substance: OSELTAMIVIR PHOSPHATE
     Indication: INFLUENZA
     Dosage: TWICE A DAY ORAL
     Route: 048
     Dates: start: 20170214, end: 20170219

REACTIONS (1)
  - Nightmare [None]

NARRATIVE: CASE EVENT DATE: 20170219
